FAERS Safety Report 26187179 (Version 1)
Quarter: 2025Q4

REPORT INFORMATION
  Report Type: Report from Study
  Country: PR (occurrence: PR)
  Receive Date: 20251222
  Receipt Date: 20251222
  Transmission Date: 20260117
  Serious: Yes (Other)
  Sender: ABBVIE
  Company Number: PR-ABBVIE-6599779

PATIENT
  Age: 78 Year
  Sex: Male

DRUGS (1)
  1. HUMIRA [Suspect]
     Active Substance: ADALIMUMAB
     Indication: Psoriasis
     Dosage: CITRATE FREE
     Route: 058
     Dates: start: 20230327

REACTIONS (3)
  - Intervertebral disc protrusion [Recovered/Resolved]
  - Carpal tunnel syndrome [Recovered/Resolved]
  - Arthroscopic surgery [Recovered/Resolved]

NARRATIVE: CASE EVENT DATE: 20240101
